FAERS Safety Report 18547014 (Version 1)
Quarter: 2020Q4

REPORT INFORMATION
  Report Type: Spontaneous
  Country: US (occurrence: US)
  Receive Date: 20201125
  Receipt Date: 20201125
  Transmission Date: 20210114
  Serious: No
  Sender: FDA-Public Use
  Company Number: US-PFIZER INC-2020398376

PATIENT
  Age: 65 Year
  Sex: Male
  Weight: 83.91 kg

DRUGS (3)
  1. VFEND [Suspect]
     Active Substance: VORICONAZOLE
     Indication: ANTIFUNGAL PROPHYLAXIS
     Dosage: 200 MG, 2X/DAY
     Route: 048
  2. VFEND [Suspect]
     Active Substance: VORICONAZOLE
     Indication: MYELOFIBROSIS
     Dosage: 200 MG, 2X/DAY
     Route: 048
     Dates: start: 202010
  3. VFEND [Suspect]
     Active Substance: VORICONAZOLE
     Indication: STEM CELL TRANSPLANT
     Dosage: 4 (50MG) TABLETS, TWICE DAILY
     Route: 048

REACTIONS (4)
  - Off label use [Unknown]
  - Incorrect dose administered [Unknown]
  - Immune system disorder [Unknown]
  - Product use in unapproved indication [Unknown]

NARRATIVE: CASE EVENT DATE: 202010
